FAERS Safety Report 10522922 (Version 2)
Quarter: 2014Q4

REPORT INFORMATION
  Report Type: Spontaneous
  Country: CH (occurrence: None)
  Receive Date: 20141010
  Receipt Date: 20141027
  Transmission Date: 20150528
  Serious: Yes (Hospitalization, Other)
  Sender: FDA-Public Use
  Company Number: B1024588A

PATIENT
  Age: 58 Year
  Sex: Male

DRUGS (11)
  1. SINTROM (ACENOCOUMAROL) [Concomitant]
     Active Substance: ACENOCOUMAROL
  2. ASPIRIN CARDIO (ACETYLSALICYLIC ACID) [Concomitant]
     Active Substance: ASPIRIN
  3. TIVICAY [Suspect]
     Active Substance: DOLUTEGRAVIR SODIUM
     Indication: HIV INFECTION
     Route: 048
     Dates: start: 20140711
  4. KEPPRA [Suspect]
     Active Substance: LEVETIRACETAM
     Indication: GENERALISED TONIC-CLONIC SEIZURE
     Route: 048
     Dates: start: 20140805, end: 20140811
  5. TRAMAL [Suspect]
     Active Substance: TRAMADOL
     Indication: PRODUCT USED FOR UNKNOWN INDICATION
     Dosage: 50MG PRN, ORAL.
  6. CORDARONE ( AMIODARONE) (AMIODARONE) [Concomitant]
  7. CRESTOR [Suspect]
     Active Substance: ROSUVASTATIN CALCIUM
     Indication: PRODUCT USED FOR UNKNOWN INDICATION
     Dosage: 50MG, PM, ORAL
     Route: 048
  8. TRUVADA (EMTRICITABINE + TENOFOVIR DISOPROXIL FUMARATE) [Concomitant]
  9. ENALAPRIL ( ENALAPRIL) [Concomitant]
  10. NEXIUM [Concomitant]
     Active Substance: ESOMEPRAZOLE MAGNESIUM
  11. DAFALGAN ( PARACETAMOL) [Concomitant]

REACTIONS (2)
  - Disinhibition [None]
  - Generalised tonic-clonic seizure [None]

NARRATIVE: CASE EVENT DATE: 20140805
